FAERS Safety Report 12240506 (Version 1)
Quarter: 2016Q2

REPORT INFORMATION
  Report Type: Other
  Country: US (occurrence: US)
  Receive Date: 20160405
  Receipt Date: 20160405
  Transmission Date: 20160815
  Serious: Yes (Other)
  Sender: FDA-Public Use
  Company Number: US-NAPPMUNDI-DEU-2016-0017837

PATIENT
  Age: 66 Year
  Sex: Female

DRUGS (7)
  1. FENTANYL. [Concomitant]
     Active Substance: FENTANYL
     Indication: ANALGESIC THERAPY
     Dosage: 125 MCG, UNK
     Route: 042
  2. HYDROMORPHONE HCL (SIMILAR TO 19-892) [Suspect]
     Active Substance: HYDROMORPHONE HYDROCHLORIDE
     Dosage: 28 MG, Q24H
     Route: 065
  3. BUPIVACAINE. [Concomitant]
     Active Substance: BUPIVACAINE
     Indication: ANAESTHESIA
     Dosage: 15 MG OF 0.5%
  4. PROPOFOL. [Concomitant]
     Active Substance: PROPOFOL
     Indication: SEDATION
  5. HYDROMORPHONE HCL (SIMILAR TO 19-892) [Suspect]
     Active Substance: HYDROMORPHONE HYDROCHLORIDE
     Indication: ANALGESIC THERAPY
     Dosage: 3 MG, Q24H
     Route: 065
  6. ROPIVACAINE [Concomitant]
     Active Substance: ROPIVACAINE
     Indication: ANAESTHESIA
     Dosage: 20 ML OF 0.5%
  7. OXYGEN. [Concomitant]
     Active Substance: OXYGEN

REACTIONS (2)
  - Nausea [Unknown]
  - Mental status changes [Unknown]
